FAERS Safety Report 5160023-4 (Version None)
Quarter: 2006Q4

REPORT INFORMATION
  Report Type: 
  Country: None (occurrence: None)
  Receive Date: 20061129
  Receipt Date: 20060713
  Transmission Date: 20070319
  Serious: No
  Sender: FDA-Public Use
  Company Number: US-GLAXOSMITHKLINE-A0612174A

PATIENT
  Age: 62 Year
  Sex: Female

DRUGS (17)
  1. WELLBUTRIN SR [Suspect]
     Indication: DEPRESSION
     Dosage: 150MG PER DAY
     Route: 048
     Dates: start: 20020101
  2. WELLBUTRIN [Suspect]
     Indication: DRUG USE FOR UNKNOWN INDICATION
     Route: 048
  3. NEXIUM [Concomitant]
  4. SULCRATE [Concomitant]
  5. CYTOTEC [Concomitant]
  6. COLACE [Concomitant]
  7. AMBIEN [Concomitant]
  8. LEVOXYL [Concomitant]
  9. M.V.I. [Concomitant]
  10. VITAMINS [Concomitant]
  11. FOLIC ACID [Concomitant]
  12. DILAUDID [Concomitant]
  13. BISACODYL SUPPOSITORY [Concomitant]
  14. MORPHINE [Concomitant]
  15. PHENERGAN [Concomitant]
  16. BONIVA [Concomitant]
  17. BACLOFEN [Concomitant]

REACTIONS (1)
  - REGURGITATION OF FOOD [None]
